FAERS Safety Report 5937305-9 (Version None)
Quarter: 2008Q4

REPORT INFORMATION
  Report Type: 
  Country: None (occurrence: None)
  Receive Date: 20081031
  Receipt Date: 20081017
  Transmission Date: 20090506
  Serious: Yes (Hospitalization)
  Sender: FDA-Public Use
  Company Number: US-ELI_LILLY_AND_COMPANY-US200810004670

PATIENT
  Sex: Female

DRUGS (2)
  1. FORTEO [Suspect]
     Dosage: UNK, UNK
     Dates: start: 20080101, end: 20080201
  2. FORTEO [Suspect]
     Dates: start: 20080101, end: 20081001

REACTIONS (3)
  - HOSPITALISATION [None]
  - PAIN [None]
  - PAIN IN EXTREMITY [None]
